FAERS Safety Report 19500142 (Version 1)
Quarter: 2021Q3

REPORT INFORMATION
  Report Type: Spontaneous
  Country: US (occurrence: US)
  Receive Date: 20210707
  Receipt Date: 20210707
  Transmission Date: 20211014
  Serious: Yes (Disabling)
  Sender: FDA-Public Use
  Company Number: US-ROCHE-2852117

PATIENT
  Age: 54 Year
  Sex: Female
  Weight: 82.63 kg

DRUGS (9)
  1. BREO ELLIPTA [Concomitant]
     Active Substance: FLUTICASONE FUROATE\VILANTEROL TRIFENATATE
     Indication: ASTHMA
     Dosage: ONGOING YES
     Route: 055
  2. HYDROXYZINE [Concomitant]
     Active Substance: HYDROXYZINE HYDROCHLORIDE
     Indication: URTICARIA
     Dosage: ONGOING YES, AS NEEDED
     Route: 048
  3. PEPCID [Concomitant]
     Active Substance: FAMOTIDINE
     Indication: URTICARIA
     Route: 048
  4. EPIPEN [Concomitant]
     Active Substance: EPINEPHRINE
     Indication: ANAPHYLACTIC REACTION
     Dosage: AS NEEDED, ONGOING : YES
  5. XOLAIR [Suspect]
     Active Substance: OMALIZUMAB
     Route: 058
     Dates: start: 202106
  6. ZYRTEC (UNITED STATES) [Concomitant]
     Indication: URTICARIA
     Dosage: TWO 10 MG TABLETS PER DOSE
     Route: 048
  7. XOLAIR [Suspect]
     Active Substance: OMALIZUMAB
     Indication: URTICARIA CHRONIC
     Dosage: TWO 150 MG SHOTS PER DOSE ;ONGOING: NO
     Route: 058
     Dates: start: 20200704
  8. MONTELUKAST [Concomitant]
     Active Substance: MONTELUKAST SODIUM
     Indication: ASTHMA
     Dosage: ONGOING: YES
     Route: 048
  9. XOLAIR [Suspect]
     Active Substance: OMALIZUMAB
     Dosage: TWO 150 MG SHOTS PER DOSE ;ONGOING: NO
     Route: 058
     Dates: start: 202105

REACTIONS (4)
  - Periorbital swelling [Recovered/Resolved]
  - Eye swelling [Unknown]
  - Ocular hyperaemia [Unknown]
  - Urticaria [Recovered/Resolved]

NARRATIVE: CASE EVENT DATE: 202105
